FAERS Safety Report 12695812 (Version 5)
Quarter: 2019Q2

REPORT INFORMATION
  Report Type: Report from Study
  Country: CZ (occurrence: CZ)
  Receive Date: 20160829
  Receipt Date: 20190608
  Transmission Date: 20190711
  Serious: Yes (Hospitalization)
  Sender: FDA-Public Use
  Company Number: CZ-UCBSA-2016032598

PATIENT
  Age: 35 Year
  Sex: Female
  Weight: 75 kg

DRUGS (5)
  1. DICLOFENAC [Concomitant]
     Active Substance: DICLOFENAC
     Indication: SPONDYLOARTHROPATHY
     Dosage: 100 MG, ONCE DAILY (QD)
     Route: 048
     Dates: start: 20151109
  2. ETHINYLESTRADIOL [Concomitant]
     Active Substance: ETHINYL ESTRADIOL
     Indication: CONTRACEPTION
     Dosage: 0.02 MG, ONCE DAILY (QD)
     Route: 048
     Dates: start: 1999
  3. CERTOLIZUMAB PEGOL VS PLACEBO [Suspect]
     Active Substance: CERTOLIZUMAB PEGOL
     Indication: AXIAL SPONDYLOARTHRITIS
     Dosage: 400 MG, UNK
     Route: 058
     Dates: start: 20160111, end: 20160208
  4. CERTOLIZUMAB PEGOL VS PLACEBO [Suspect]
     Active Substance: CERTOLIZUMAB PEGOL
     Dosage: 200 MG, UNK
     Route: 058
     Dates: start: 20160222, end: 20160711
  5. DESOGESTREL [Concomitant]
     Active Substance: DESOGESTREL
     Indication: CONTRACEPTION
     Dosage: 0.15 MG, ONCE DAILY (QD)
     Route: 048
     Dates: start: 1999

REACTIONS (1)
  - Perirectal abscess [Recovered/Resolved]

NARRATIVE: CASE EVENT DATE: 20160723
